FAERS Safety Report 20093635 (Version 1)
Quarter: 2021Q4

REPORT INFORMATION
  Report Type: Spontaneous
  Country: US (occurrence: US)
  Receive Date: 20211121
  Receipt Date: 20211121
  Transmission Date: 20220303
  Serious: No
  Sender: FDA-Public Use
  Company Number: US-ELI_LILLY_AND_COMPANY-US202111006898

PATIENT
  Age: 77 Year
  Sex: Female

DRUGS (1)
  1. TRULICITY [Suspect]
     Active Substance: DULAGLUTIDE
     Indication: Latent autoimmune diabetes in adults
     Dosage: 0.75 MG, UNKNOWN
     Route: 058
     Dates: start: 20211110

REACTIONS (6)
  - Abdominal pain lower [Not Recovered/Not Resolved]
  - Dyspepsia [Not Recovered/Not Resolved]
  - Diarrhoea [Not Recovered/Not Resolved]
  - Decreased appetite [Recovering/Resolving]
  - Nausea [Not Recovered/Not Resolved]
  - Off label use [Unknown]
